FAERS Safety Report 20758494 (Version 1)
Quarter: 2022Q2

REPORT INFORMATION
  Report Type: Spontaneous
  Country: US (occurrence: US)
  Receive Date: 20220427
  Receipt Date: 20220427
  Transmission Date: 20220721
  Serious: No
  Sender: FDA-Public Use
  Company Number: US-PFIZER INC-202200564304

PATIENT
  Age: 71 Year
  Sex: Female

DRUGS (1)
  1. PACLITAXEL [Suspect]
     Active Substance: PACLITAXEL
     Indication: Breast cancer
     Dosage: UNK
     Route: 042

REACTIONS (6)
  - Depressed mood [Recovered/Resolved]
  - Depressive symptom [Recovered/Resolved]
  - Insomnia [Unknown]
  - Anxiety [Unknown]
  - Apathy [Unknown]
  - Psychomotor hyperactivity [Unknown]
